FAERS Safety Report 10683258 (Version 5)
Quarter: 2015Q2

REPORT INFORMATION
  Report Type: Spontaneous
  Country: US (occurrence: US)
  Receive Date: 20141230
  Receipt Date: 20150617
  Transmission Date: 20150821
  Serious: Yes (Hospitalization, Other)
  Sender: FDA-Public Use
  Company Number: US-PFIZER INC-2014324748

PATIENT
  Age: 53 Year
  Sex: Female
  Weight: 93 kg

DRUGS (30)
  1. LYRICA [Suspect]
     Active Substance: PREGABALIN
     Indication: POST-TRAUMATIC STRESS DISORDER
     Dosage: 200 MG, 3X/DAY
     Route: 048
     Dates: start: 20130703
  2. CELEXA [Concomitant]
     Active Substance: CITALOPRAM HYDROBROMIDE
     Dosage: UNK
     Dates: start: 2009
  3. OXYGEN. [Concomitant]
     Active Substance: OXYGEN
     Dosage: 2 L, UNK
     Route: 045
     Dates: start: 20110624
  4. ALBUTEROL SULFATE. [Concomitant]
     Active Substance: ALBUTEROL SULFATE
     Dosage: UNK, AS NEEDED
     Dates: start: 2009
  5. LYRICA [Suspect]
     Active Substance: PREGABALIN
     Indication: NEUROPATHY PERIPHERAL
     Dosage: 200 MG, 3X/DAY
     Route: 048
     Dates: start: 2006
  6. CELEXA [Concomitant]
     Active Substance: CITALOPRAM HYDROBROMIDE
     Indication: DEPRESSION
     Dosage: 20 MG, 2X/DAY
     Dates: start: 20140206
  7. OXYGEN. [Concomitant]
     Active Substance: OXYGEN
     Dosage: UNK, AS NEEDED (PRN)
     Route: 045
     Dates: start: 2009
  8. SPIRIVA [Concomitant]
     Active Substance: TIOTROPIUM BROMIDE MONOHYDRATE
     Dosage: UNK
     Dates: start: 2010
  9. TRAZODONE HYDROCHLORIDE. [Concomitant]
     Active Substance: TRAZODONE HYDROCHLORIDE
     Dosage: 100 MG TABLET, TOOK 2 TABLETS ORALLY AT BEDTIME
     Route: 048
     Dates: start: 20140428
  10. LINZESS [Concomitant]
     Active Substance: LINACLOTIDE
     Dosage: UNK, AS NEEDED
     Route: 048
     Dates: start: 2013
  11. MULTIVITAMINS [Concomitant]
     Active Substance: VITAMINS
     Dosage: 1 DF, 1X/DAY
     Route: 048
     Dates: start: 20120312
  12. XANAX [Concomitant]
     Active Substance: ALPRAZOLAM
     Indication: POST-TRAUMATIC STRESS DISORDER
     Dosage: 0.5 UNK, AS NEEDED
     Dates: start: 2009
  13. ALPRAZOLAM. [Concomitant]
     Active Substance: ALPRAZOLAM
     Indication: POST-TRAUMATIC STRESS DISORDER
     Dosage: UNK, AS NEEDED
     Dates: start: 2009
  14. LYRICA [Suspect]
     Active Substance: PREGABALIN
     Indication: FIBROMYALGIA
     Dosage: 200 MG, 3X/DAY
     Route: 048
     Dates: start: 2009
  15. ZANAFLEX [Concomitant]
     Active Substance: TIZANIDINE HYDROCHLORIDE
     Indication: MUSCLE RELAXANT THERAPY
     Dosage: 4 MG, 3X/DAY (TAKE ONE PO THREE TIMES A DAY AS NEEDED)
     Route: 048
     Dates: start: 20141010
  16. LINZESS [Concomitant]
     Active Substance: LINACLOTIDE
     Dosage: 145 ?G, 1X/DAY
     Route: 048
     Dates: start: 20130604
  17. PROCET /USA/ [Concomitant]
     Active Substance: ACETAMINOPHEN\HYDROCODONE BITARTRATE
     Indication: PAIN
     Dosage: 10-325 MG TABS, 1 EVERY 6-8 HOURS AS NEEDED
     Dates: start: 20130806
  18. HYDROCODONE [Concomitant]
     Active Substance: HYDROCODONE
     Indication: MUSCLE RELAXANT THERAPY
     Dosage: UNK
     Dates: start: 2009
  19. VENTOLIN HFA/ ACT AERS [Concomitant]
     Dosage: ONE TO TWO PUFFS EVERY 4 HOURS AS NEEDED
     Dates: start: 20110624
  20. ALBUTEROL SULFATE. [Concomitant]
     Active Substance: ALBUTEROL SULFATE
     Dosage: UNK (2.5MG/3ML) AS NEEDED
     Dates: start: 20120312
  21. CARAFATE [Concomitant]
     Active Substance: SUCRALFATE
     Dosage: 1 G, 4X/DAY
     Route: 048
     Dates: start: 20130625
  22. TRAZODONE HYDROCHLORIDE. [Concomitant]
     Active Substance: TRAZODONE HYDROCHLORIDE
     Dosage: UNK
     Route: 048
     Dates: start: 2009
  23. ZANAFLEX [Concomitant]
     Active Substance: TIZANIDINE HYDROCHLORIDE
     Indication: MUSCLE SPASMS
  24. NEXIUM [Concomitant]
     Active Substance: ESOMEPRAZOLE MAGNESIUM
     Dosage: 40 MG, 1X/DAY
     Route: 048
     Dates: start: 20130402
  25. LIDODERM [Concomitant]
     Active Substance: LIDOCAINE
     Dosage: 5 % PTCH, DAILY (ON 12 OFF 12 HOURS)
     Dates: start: 20140725
  26. VENTOLIN HFA/ ACT AERS [Concomitant]
     Dosage: UNK, AS NEEDED
     Dates: start: 2009
  27. SPIRIVA [Concomitant]
     Active Substance: TIOTROPIUM BROMIDE MONOHYDRATE
     Dosage: 18 ?G, 1X/DAY
     Dates: start: 20131104
  28. ALPRAZOLAM. [Concomitant]
     Active Substance: ALPRAZOLAM
     Indication: ANXIETY
     Dosage: 0.5 MG, 3X/DAY
     Dates: start: 20130403
  29. CALCIUM CARBONATE W/VITAMIN D [Concomitant]
     Dosage: 600-400 MG UNIT TABLET, TWICE A DAY
     Route: 048
     Dates: start: 20120312
  30. CALCIUM CARBONATE W/VITAMIN D [Concomitant]
     Dosage: UNK
     Dates: start: 2010

REACTIONS (40)
  - Head injury [Not Recovered/Not Resolved]
  - Type 2 diabetes mellitus [Not Recovered/Not Resolved]
  - Anxiety [Unknown]
  - Neuralgia [Unknown]
  - Generalised anxiety disorder [Unknown]
  - Gastrointestinal disorder [Unknown]
  - Tobacco user [Unknown]
  - Back pain [Not Recovered/Not Resolved]
  - Pain in extremity [Not Recovered/Not Resolved]
  - Urinary tract infection [Recovered/Resolved]
  - Radiculitis [Unknown]
  - Hiatus hernia [Unknown]
  - Flank pain [Unknown]
  - Disease progression [Not Recovered/Not Resolved]
  - Thyroid neoplasm [Not Recovered/Not Resolved]
  - Chronic obstructive pulmonary disease [Not Recovered/Not Resolved]
  - Gastritis [Unknown]
  - Limb injury [Unknown]
  - Hyperthyroidism [Not Recovered/Not Resolved]
  - Haemoptysis [Unknown]
  - Dysphonia [Unknown]
  - Bronchitis [Recovered/Resolved]
  - Neuritis [Unknown]
  - Gastrooesophageal reflux disease [Unknown]
  - Pain [Unknown]
  - Cervical radiculopathy [Unknown]
  - Hyperglycaemia [Unknown]
  - Haemorrhoids [Unknown]
  - Diverticulum [Unknown]
  - Spinal osteoarthritis [Unknown]
  - Back injury [Unknown]
  - Angina pectoris [Unknown]
  - Diabetic neuropathy [Unknown]
  - Musculoskeletal chest pain [Unknown]
  - Spinal osteoarthritis [Unknown]
  - Large intestine polyp [Unknown]
  - Dysphagia [Unknown]
  - Drug ineffective [Unknown]
  - Rotator cuff syndrome [Unknown]
  - Sacroiliitis [Not Recovered/Not Resolved]

NARRATIVE: CASE EVENT DATE: 2009
